FAERS Safety Report 8165375-9 (Version None)
Quarter: 2012Q1

REPORT INFORMATION
  Report Type: 
  Country: None (occurrence: None)
  Receive Date: 20120103
  Receipt Date: 20110928
  Transmission Date: 20120608
  Serious: No
  Sender: FDA-Public Use
  Company Number: AE-2011-001894

PATIENT
  Age: 59 Year
  Sex: Male
  Weight: 61.6892 kg

DRUGS (4)
  1. INCIVEK [Suspect]
     Dosage: 2250 MG (750 MG, 3 IN 1 D), ORAL
     Dates: start: 20110820, end: 20110824
  2. AMBIEN [Concomitant]
  3. PEGASYS [Concomitant]
  4. RIBAVIRIN [Concomitant]

REACTIONS (9)
  - TACHYCARDIA [None]
  - SLEEP DISORDER [None]
  - NIGHTMARE [None]
  - DYSPNOEA [None]
  - DECREASED APPETITE [None]
  - DEPRESSION [None]
  - FATIGUE [None]
  - ANHEDONIA [None]
  - NAUSEA [None]
